FAERS Safety Report 17709795 (Version 6)
Quarter: 2020Q2

REPORT INFORMATION
  Report Type: Report from Study
  Country: US (occurrence: US)
  Receive Date: 20200427
  Receipt Date: 20200629
  Transmission Date: 20200714
  Serious: Yes (Life-Threatening)
  Sender: FDA-Public Use
  Company Number: US-ROCHE-2587420

PATIENT
  Age: 61 Year
  Sex: Male
  Weight: 68 kg

DRUGS (32)
  1. FUROSEMIDE. [Concomitant]
     Active Substance: FUROSEMIDE
     Route: 065
     Dates: start: 20200423
  2. INSULIN LISPRO [Concomitant]
     Active Substance: INSULIN LISPRO
     Indication: TYPE 2 DIABETES MELLITUS
     Dosage: 12 UNIT
     Route: 065
  3. EPOPROSTENOL. [Concomitant]
     Active Substance: EPOPROSTENOL
     Indication: HYPERTENSION
     Dosage: 615 OTHER
     Route: 065
     Dates: start: 20200415, end: 20200420
  4. NOREPINEPHRINE. [Concomitant]
     Active Substance: NOREPINEPHRINE
     Indication: HYPOTENSION
     Route: 065
     Dates: start: 20200414, end: 20200421
  5. PROPOFOL. [Concomitant]
     Active Substance: PROPOFOL
     Indication: SEDATION
     Route: 065
     Dates: start: 20200414
  6. ALBUTEROL;IPRATROPIUM [Concomitant]
     Active Substance: ALBUTEROL\IPRATROPIUM
     Indication: PNEUMONIA
     Route: 065
     Dates: start: 20200416
  7. AMIODARONE [Concomitant]
     Active Substance: AMIODARONE
     Indication: TACHYCARDIA
     Route: 065
     Dates: start: 20200421
  8. LACTATED RINGERS SOLUTION [Concomitant]
     Active Substance: CALCIUM CHLORIDE\POTASSIUM CHLORIDE\SODIUM CHLORIDE\SODIUM LACTATE
     Dosage: HYDRATION AND NUTRIENTS
     Route: 065
     Dates: start: 20200414, end: 20200418
  9. ROCURONIUM [Concomitant]
     Active Substance: ROCURONIUM BROMIDE
     Indication: SEDATION
     Route: 065
     Dates: start: 20200420, end: 20200420
  10. MIDAZOLAM. [Concomitant]
     Active Substance: MIDAZOLAM
     Indication: SEDATION
     Route: 065
     Dates: start: 20200415
  11. CISATRACURIUM. [Concomitant]
     Active Substance: CISATRACURIUM
     Indication: SEDATION
     Route: 065
     Dates: start: 20200415
  12. ENOXAPARIN [Concomitant]
     Active Substance: ENOXAPARIN
     Indication: THROMBOSIS PROPHYLAXIS
     Route: 065
     Dates: start: 20200415, end: 20200418
  13. ETOMIDATE. [Concomitant]
     Active Substance: ETOMIDATE
     Indication: ANAESTHESIA
     Route: 065
     Dates: start: 20200414, end: 20200414
  14. VASOPRESSIN. [Concomitant]
     Active Substance: VASOPRESSIN
     Indication: BLOOD PRESSURE MEASUREMENT
     Route: 065
     Dates: start: 20200419, end: 20200422
  15. ACETAMINOPHEN. [Concomitant]
     Active Substance: ACETAMINOPHEN
     Indication: PYREXIA
     Route: 065
     Dates: start: 20200416, end: 20200420
  16. PLASMA [Concomitant]
     Active Substance: HUMAN PLASMA
     Indication: COVID-19
     Route: 065
     Dates: start: 20200418, end: 20200418
  17. IPRATROPIUM [Concomitant]
     Active Substance: IPRATROPIUM
     Indication: PNEUMONIA
     Dosage: 2 PUFFS
     Route: 065
     Dates: start: 20200414, end: 20200414
  18. SODIUM PHOSPHATES RECTAL SOLUTION [Concomitant]
     Dosage: MAINTAINING NUTRIENT LEVELS
     Route: 065
     Dates: start: 20200420, end: 20200420
  19. SENNA [Concomitant]
     Active Substance: SENNA LEAF\SENNOSIDES\SENNOSIDES A AND B
     Indication: CONSTIPATION
     Route: 065
     Dates: start: 20200420, end: 20200424
  20. FENTANYL. [Concomitant]
     Active Substance: FENTANYL
     Indication: SEDATION
     Route: 065
     Dates: start: 20200414
  21. ALBUTEROL [SALBUTAMOL] [Concomitant]
     Active Substance: ALBUTEROL
     Indication: PNEUMONIA
     Route: 065
     Dates: start: 20200414, end: 20200414
  22. CALCIUM GLUCONATE. [Concomitant]
     Active Substance: CALCIUM GLUCONATE
     Indication: BLOOD CALCIUM DECREASED
     Route: 065
     Dates: start: 20200416, end: 20200416
  23. ENOXAPARIN [Concomitant]
     Active Substance: ENOXAPARIN
     Route: 065
     Dates: start: 20200419
  24. FUROSEMIDE. [Concomitant]
     Active Substance: FUROSEMIDE
     Indication: POLYURIA
     Route: 065
     Dates: start: 20200419, end: 20200420
  25. LABETALOL [Concomitant]
     Active Substance: LABETALOL\LABETALOL HYDROCHLORIDE
     Indication: HYPERTENSION
     Route: 065
     Dates: start: 20200424, end: 20200424
  26. POTASSIUM [Concomitant]
     Active Substance: POTASSIUM
     Dosage: MAINTAINING NUTRIENT LEVELS
     Route: 065
     Dates: start: 20200420, end: 20200420
  27. KETAMINE [Concomitant]
     Active Substance: KETAMINE
     Indication: SEDATION
     Dosage: 2 MG/ML
     Route: 065
     Dates: start: 20200418
  28. PHENYLEPHRINE [Concomitant]
     Active Substance: PHENYLEPHRINE HYDROCHLORIDE
     Indication: HYPOTENSION
     Route: 065
     Dates: start: 20200416, end: 20200421
  29. TOCILIZUMAB. [Suspect]
     Active Substance: TOCILIZUMAB
     Indication: COVID-19 PNEUMONIA
     Dosage: DATE OF MOST RECENT DOSE OF TOCILIZUMAB PRIOR TO AE ONSET: 14/APR/2020 AT 20:09?DATE OF MOST RECENT
     Route: 042
     Dates: start: 20200414
  30. FAMOTIDINE. [Concomitant]
     Active Substance: FAMOTIDINE
     Dosage: STRESS ULCER PROPHYLAXIS
     Route: 065
     Dates: start: 20200414
  31. ATORVASTATIN [Concomitant]
     Active Substance: ATORVASTATIN
     Indication: BLOOD CHOLESTEROL INCREASED
     Route: 065
  32. SUCCINYLCHOLINE [SUXAMETHONIUM] [Concomitant]
     Active Substance: SUCCINYLCHOLINE
     Indication: SEDATION
     Route: 065
     Dates: start: 20200414, end: 20200414

REACTIONS (2)
  - Staphylococcal infection [Recovered/Resolved]
  - Sepsis [Not Recovered/Not Resolved]

NARRATIVE: CASE EVENT DATE: 20200414
